FAERS Safety Report 22640216 (Version 8)
Quarter: 2024Q1

REPORT INFORMATION
  Report Type: Spontaneous
  Country: AT (occurrence: AT)
  Receive Date: 20230626
  Receipt Date: 20240328
  Transmission Date: 20240410
  Serious: Yes (Hospitalization)
  Sender: FDA-Public Use
  Company Number: AT-ROCHE-3368603

PATIENT
  Age: 35 Year
  Sex: Female
  Weight: 62 kg

DRUGS (64)
  1. TYKERB [Suspect]
     Active Substance: LAPATINIB DITOSYLATE
     Indication: HER2 positive breast cancer
     Dosage: 250 MG, QD MOST RECENT DOSE PRIOR TO AE 28/OCT/2020
     Route: 048
     Dates: start: 20201028, end: 20210709
  2. TYKERB [Suspect]
     Active Substance: LAPATINIB DITOSYLATE
     Dosage: 250 MG (0.25 DAY) (MOST RECENT DOSE PRIOR TO AE 28 OCT 2020)
     Route: 048
     Dates: start: 20230630, end: 202401
  3. FEMARA [Suspect]
     Active Substance: LETROZOLE
     Indication: HER2 positive breast cancer
     Dosage: 2.5 MG, QD (MOST RECENT DOSE PRIOR TO AE 20 JAN 2020)
     Route: 048
     Dates: start: 20180108
  4. FEMARA [Suspect]
     Active Substance: LETROZOLE
     Dosage: 2.5 MG, QD
     Route: 048
     Dates: start: 20200108, end: 20200120
  5. FEMARA [Suspect]
     Active Substance: LETROZOLE
     Dosage: UNK
     Route: 065
     Dates: start: 20200120
  6. ANASTROZOLE [Suspect]
     Active Substance: ANASTROZOLE
     Indication: HER2 positive breast cancer
     Dosage: 1 MG, QD
     Route: 048
     Dates: start: 20230630, end: 202401
  7. CAPECITABINE [Suspect]
     Active Substance: CAPECITABINE
     Indication: HER2 positive breast cancer
     Dosage: 1000 MG (0.5 DAY)
     Route: 048
     Dates: start: 20220623, end: 20230612
  8. TAXOTERE [Suspect]
     Active Substance: DOCETAXEL
     Indication: HER2 positive breast cancer
     Dosage: 75 MG/M2, Q3W (MOST RECENT DOSE PRIOR TO AE 15 NOV 2017)
     Route: 042
     Dates: start: 20170621, end: 20171115
  9. HERCEPTIN [Suspect]
     Active Substance: TRASTUZUMAB
     Indication: HER2 positive breast cancer
     Dosage: 6 MG/KG, Q3W
     Route: 058
     Dates: start: 20170712, end: 20171115
  10. HERCEPTIN [Suspect]
     Active Substance: TRASTUZUMAB
     Dosage: 8 MG/KG, Q3W (MOST RECENT DOSE PRIOR TO THE EVENT: 23/JUN/2022, ROA: INTRAVENOUS DRIP)
     Route: 042
     Dates: start: 20170621, end: 20170621
  11. HERCEPTIN [Suspect]
     Active Substance: TRASTUZUMAB
     Dosage: 6 MG/KG, Q3W
     Route: 042
     Dates: start: 20180108, end: 20191127
  12. HERCEPTIN [Suspect]
     Active Substance: TRASTUZUMAB
     Dosage: 600 MG, Q3W
     Route: 058
     Dates: start: 20201028, end: 20210709
  13. HERCEPTIN [Suspect]
     Active Substance: TRASTUZUMAB
     Dosage: 600 MG, Q3W
     Route: 058
     Dates: start: 20220623
  14. HERCEPTIN [Suspect]
     Active Substance: TRASTUZUMAB
     Dosage: 600 MG, Q3W
     Route: 058
     Dates: start: 20220623, end: 20230801
  15. HERCEPTIN [Suspect]
     Active Substance: TRASTUZUMAB
     Dosage: 600 MG, Q3W
     Route: 058
     Dates: start: 20230908, end: 20231228
  16. PERJETA [Suspect]
     Active Substance: PERTUZUMAB
     Indication: HER2 positive breast cancer
     Dosage: 840 MG, Q3W (MOST RECENT DOSE PRIOR TO THE EVENT: 08 JAN 2018)
     Route: 042
     Dates: start: 20170621, end: 20170621
  17. PERJETA [Suspect]
     Active Substance: PERTUZUMAB
     Dosage: 420 MG, Q3W
     Route: 042
     Dates: start: 20170712, end: 20171115
  18. PERJETA [Suspect]
     Active Substance: PERTUZUMAB
     Dosage: 420 MG, Q3W
     Route: 042
     Dates: start: 20180108, end: 20191127
  19. AROMASIN [Suspect]
     Active Substance: EXEMESTANE
     Indication: HER2 positive breast cancer
     Dosage: 25 MG, QD
     Route: 048
     Dates: start: 20200120
  20. AROMASIN [Suspect]
     Active Substance: EXEMESTANE
     Dosage: 25 MG, QD
     Route: 048
     Dates: start: 20200120, end: 20230630
  21. GOSERELIN [Suspect]
     Active Substance: GOSERELIN
     Indication: HER2 positive breast cancer
     Dosage: 3.6 MG, Q4W
     Route: 058
     Dates: start: 20180108
  22. GOSERELIN [Suspect]
     Active Substance: GOSERELIN
     Dosage: 3.6 MG, Q4W
     Route: 058
     Dates: start: 20180108, end: 202401
  23. KADCYLA [Suspect]
     Active Substance: ADO-TRASTUZUMAB EMTANSINE
     Indication: HER2 positive breast cancer
     Dosage: 208.8 MG, Q3W
     Route: 042
     Dates: start: 20200120, end: 20200302
  24. KADCYLA [Suspect]
     Active Substance: ADO-TRASTUZUMAB EMTANSINE
     Dosage: 237 MG, Q3W
     Route: 042
     Dates: start: 20200323, end: 20201006
  25. TUCATINIB [Suspect]
     Active Substance: TUCATINIB
     Indication: HER2 positive breast cancer
     Dosage: 150 MG (0.5 DAY)
     Route: 048
     Dates: start: 20220623, end: 20230612
  26. XGEVA [Suspect]
     Active Substance: DENOSUMAB
     Indication: HER2 positive breast cancer
     Dosage: 120 MG, QMO
     Route: 030
     Dates: start: 20170621
  27. XGEVA [Suspect]
     Active Substance: DENOSUMAB
     Indication: Metastases to bone
     Dosage: 120 MG, Q4W
     Route: 058
     Dates: start: 20170621
  28. LEVETIRACETAM [Concomitant]
     Active Substance: LEVETIRACETAM
     Indication: Product used for unknown indication
     Dosage: UNK
     Route: 065
     Dates: start: 20200102
  29. LEVETIRACETAM [Concomitant]
     Active Substance: LEVETIRACETAM
     Dosage: 50 MG
     Route: 048
     Dates: start: 20191224, end: 20191224
  30. LEVETIRACETAM [Concomitant]
     Active Substance: LEVETIRACETAM
     Dosage: 8 MG
     Route: 048
     Dates: start: 20240119
  31. NOVALGIN [Concomitant]
     Indication: Spinal pain
     Dosage: UNK
     Route: 048
     Dates: start: 20171220, end: 201801
  32. NOVALGIN [Concomitant]
     Dosage: UNK
     Route: 048
     Dates: start: 20180515
  33. DEXAMETHASONE [Concomitant]
     Active Substance: DEXAMETHASONE
     Indication: Syncope
     Dosage: UNK
     Route: 065
     Dates: start: 20201111
  34. ESOMEPRAZOLE [Concomitant]
     Active Substance: ESOMEPRAZOLE
     Indication: Product used for unknown indication
     Dosage: 40 MG, QD
     Route: 048
     Dates: start: 20170621, end: 20191229
  35. ESOMEPRAZOLE [Concomitant]
     Active Substance: ESOMEPRAZOLE
     Dosage: UNK
     Route: 065
     Dates: start: 20191230
  36. LOPERAMIDE HYDROCHLORIDE [Concomitant]
     Active Substance: LOPERAMIDE HYDROCHLORIDE
     Indication: Product used for unknown indication
     Dosage: UNK
     Route: 065
     Dates: start: 20201028
  37. APREPITANT [Concomitant]
     Active Substance: APREPITANT
     Indication: Product used for unknown indication
     Dosage: 80 MG (ONCE A DAY FOR 2 DAYS AFTER BC THERAPY)
     Route: 048
     Dates: start: 20170621, end: 20171117
  38. APREPITANT [Concomitant]
     Active Substance: APREPITANT
     Dosage: 125 MG
     Route: 048
     Dates: start: 20170621, end: 20171115
  39. APREPITANT [Concomitant]
     Active Substance: APREPITANT
     Dosage: UNK
     Route: 065
     Dates: start: 20210812
  40. ESOMEPRAZOLE [Concomitant]
     Active Substance: ESOMEPRAZOLE
     Indication: Product used for unknown indication
     Dosage: ONGOING = CHECKED
     Route: 065
     Dates: start: 20191230
  41. CALCIUM CARBONATE\CHOLECALCIFEROL [Concomitant]
     Active Substance: CALCIUM CARBONATE\CHOLECALCIFEROL
     Indication: Product used for unknown indication
     Dosage: 500 MG
     Route: 048
     Dates: start: 20171025
  42. DEXAGENTA [Concomitant]
     Indication: Cataract
     Dosage: 1 DRP, (1/12 MILLILITRE)
     Route: 048
     Dates: start: 20230511, end: 20230518
  43. METHYLPREDNISOLONE ACEPONATE [Concomitant]
     Active Substance: METHYLPREDNISOLONE ACEPONATE
     Indication: Product used for unknown indication
     Dosage: UNK
     Route: 065
  44. ZOFRAN [Concomitant]
     Active Substance: ONDANSETRON HYDROCHLORIDE
     Indication: Product used for unknown indication
     Dosage: UNK
     Route: 065
  45. ZOFRAN [Concomitant]
     Active Substance: ONDANSETRON HYDROCHLORIDE
     Dosage: 20 MG
     Route: 048
     Dates: start: 20170621, end: 20191127
  46. ROCURONIUM BROMIDE [Concomitant]
     Active Substance: ROCURONIUM BROMIDE
     Indication: Product used for unknown indication
     Dosage: UNK
     Route: 065
  47. DEXABENE [Concomitant]
     Indication: Product used for unknown indication
     Dosage: UNK
     Route: 065
  48. LETROZOLE [Concomitant]
     Active Substance: LETROZOLE
     Indication: Product used for unknown indication
     Dosage: UNK
     Route: 065
  49. AMOXICILLIN\CLAVULANATE POTASSIUM [Concomitant]
     Active Substance: AMOXICILLIN\CLAVULANATE POTASSIUM
     Indication: Product used for unknown indication
     Dosage: 1 G (0.5 DAY)
     Route: 048
     Dates: start: 20230508, end: 20230515
  50. KETOPROFEN [Concomitant]
     Active Substance: KETOPROFEN
     Indication: Product used for unknown indication
     Dosage: UNK
     Route: 065
  51. DIPHENHYDRAMINE HYDROCHLORIDE [Concomitant]
     Active Substance: DIPHENHYDRAMINE HYDROCHLORIDE
     Indication: Product used for unknown indication
     Dosage: UNK
     Route: 065
  52. PIRITRAMIDE [Concomitant]
     Active Substance: PIRITRAMIDE
     Indication: Product used for unknown indication
     Dosage: UNK
     Route: 065
  53. VITAMINS WITH MINERALS [Concomitant]
     Active Substance: MINERALS\VITAMINS
     Indication: Product used for unknown indication
     Dosage: 500 MG
     Route: 048
     Dates: start: 20171025
  54. CLOBAZAM [Concomitant]
     Active Substance: CLOBAZAM
     Indication: Product used for unknown indication
     Dosage: 10 MG
     Route: 065
     Dates: start: 20230505, end: 20230508
  55. GOSERELIN [Concomitant]
     Active Substance: GOSERELIN
     Indication: Product used for unknown indication
     Dosage: 3.6 MG, Q4W
     Route: 058
     Dates: start: 20180108
  56. GOSERELIN [Concomitant]
     Active Substance: GOSERELIN
     Dosage: UNK
     Route: 065
     Dates: start: 20180129
  57. KETANEST [Concomitant]
     Indication: Product used for unknown indication
     Dosage: UNK
     Route: 065
  58. ACETAMINOPHEN [Concomitant]
     Active Substance: ACETAMINOPHEN
     Indication: Product used for unknown indication
     Dosage: UNK
     Route: 065
  59. FENTANYL [Concomitant]
     Active Substance: FENTANYL\FENTANYL CITRATE
     Indication: Product used for unknown indication
     Dosage: UNK
     Route: 065
  60. LIPEGFILGRASTIM [Concomitant]
     Active Substance: LIPEGFILGRASTIM
     Indication: Product used for unknown indication
     Dosage: UNK
     Route: 065
  61. LIPEGFILGRASTIM [Concomitant]
     Active Substance: LIPEGFILGRASTIM
     Dosage: 6 MG
     Route: 058
     Dates: start: 20200620, end: 20201006
  62. PROPOFOL [Concomitant]
     Active Substance: PROPOFOL
     Indication: Product used for unknown indication
     Dosage: UNK
     Route: 065
  63. UNASAN [Concomitant]
     Indication: Product used for unknown indication
     Dosage: 1 G
     Route: 048
     Dates: start: 20230508, end: 20230515
  64. DICLOFENAC [Concomitant]
     Active Substance: DICLOFENAC
     Indication: Headache
     Dosage: UNK
     Route: 065
     Dates: start: 20231231, end: 20231231

REACTIONS (3)
  - Epilepsy [Recovered/Resolved]
  - Epilepsy [Recovered/Resolved]
  - Pneumonia [Recovered/Resolved]

NARRATIVE: CASE EVENT DATE: 20191224
